FAERS Safety Report 9999263 (Version 3)
Quarter: 2014Q2

REPORT INFORMATION
  Report Type: Spontaneous
  Country: US (occurrence: US)
  Receive Date: 20140312
  Receipt Date: 20140401
  Transmission Date: 20141212
  Serious: No
  Sender: FDA-Public Use
  Company Number: US-ROXANE LABORATORIES, INC.-2014-RO-00376RO

PATIENT
  Sex: Female

DRUGS (2)
  1. IPRATROPIUM BROMIDE NASAL SOLUTION, 0.06% [Suspect]
     Indication: UPPER-AIRWAY COUGH SYNDROME
     Route: 055
  2. IPRATROPIUM BROMIDE NASAL SOLUTION, 0.06% [Suspect]
     Indication: COUGH

REACTIONS (1)
  - Mucosal inflammation [Unknown]
